FAERS Safety Report 6783437-5 (Version None)
Quarter: 2010Q2

REPORT INFORMATION
  Report Type: 
  Country: None (occurrence: None)
  Receive Date: 20100622
  Receipt Date: 20100203
  Transmission Date: 20101027
  Serious: Yes (Other)
  Sender: FDA-Public Use
  Company Number: CO-PFIZER INC-2010015757

PATIENT
  Sex: Female

DRUGS (2)
  1. LYRICA [Suspect]
     Indication: FIBROMYALGIA
     Dosage: 75 MG, 2X/DAY
     Route: 048
     Dates: start: 20100202
  2. ACETAMINOPHEN AND CODEINE PHOSPHATE [Suspect]
     Indication: PAIN
     Dosage: 30/500 MG

REACTIONS (7)
  - DISCOMFORT [None]
  - DIZZINESS [None]
  - HYPERHIDROSIS [None]
  - PAIN [None]
  - SOMNOLENCE [None]
  - TACHYCARDIA [None]
  - THROAT TIGHTNESS [None]
